FAERS Safety Report 19670010 (Version 1)
Quarter: 2021Q3

REPORT INFORMATION
  Report Type: Report from Study
  Country: FR (occurrence: FR)
  Receive Date: 20210806
  Receipt Date: 20210806
  Transmission Date: 20211014
  Serious: Yes (Other)
  Sender: FDA-Public Use
  Company Number: FR-SHIRE-FR201837723

PATIENT
  Age: 23 Year
  Sex: Female

DRUGS (2)
  1. VELAGLUCERASE ALFA [Suspect]
     Active Substance: VELAGLUCERASE ALFA
     Indication: LYSOSOMAL ACID LIPASE DEFICIENCY
     Dosage: 3200 INTERNATIONAL UNIT, Q3WEEKS
     Route: 065
     Dates: start: 20140721
  2. VELAGLUCERASE ALFA [Suspect]
     Active Substance: VELAGLUCERASE ALFA
     Dosage: 3200 INTERNATIONAL UNIT, 2/MONTH
     Route: 042
     Dates: start: 20140721

REACTIONS (4)
  - Hypertension [Unknown]
  - Exposure during pregnancy [Not Recovered/Not Resolved]
  - Urinary tract infection [Unknown]
  - Acne [Not Recovered/Not Resolved]

NARRATIVE: CASE EVENT DATE: 20180601
